FAERS Safety Report 21694430 (Version 1)
Quarter: 2022Q4

REPORT INFORMATION
  Report Type: Spontaneous
  Country: US (occurrence: None)
  Receive Date: 20221206
  Receipt Date: 20221206
  Transmission Date: 20230112
  Serious: Yes (Life-Threatening, Hospitalization)
  Sender: FDA-Public Use
  Company Number: None

PATIENT
  Age: 85 Year
  Sex: Female

DRUGS (4)
  1. FUROSEMIDE [Suspect]
     Active Substance: FUROSEMIDE
  2. AMLODIPINE [Suspect]
     Active Substance: AMLODIPINE BESYLATE
  3. LOSARTAN [Suspect]
     Active Substance: LOSARTAN
  4. CARVEDILOL [Suspect]
     Active Substance: CARVEDILOL

REACTIONS (5)
  - Hypertension [None]
  - Blood pressure decreased [None]
  - Acute kidney injury [None]
  - Dehydration [None]
  - Pulmonary embolism [None]

NARRATIVE: CASE EVENT DATE: 20220726
